FAERS Safety Report 5465930-0 (Version None)
Quarter: 2007Q3

REPORT INFORMATION
  Report Type: 
  Country: None (occurrence: None)
  Receive Date: 20070924
  Receipt Date: 20070917
  Transmission Date: 20080115
  Serious: Yes (Other)
  Sender: FDA-Public Use
  Company Number: AT-SHR-AT-2007-035203

PATIENT
  Age: 17 Year
  Sex: Male

DRUGS (1)
  1. ULTRAVIST 300 [Suspect]
     Indication: COMPUTERISED TOMOGRAM THORAX
     Dosage: 140 ML, 1 DOSE
     Route: 042
     Dates: start: 20070914, end: 20070914

REACTIONS (5)
  - CIRCULATORY COLLAPSE [None]
  - FEELING COLD [None]
  - FEELING JITTERY [None]
  - NAUSEA [None]
  - NERVOUSNESS [None]
